FAERS Safety Report 9451419 (Version 1)
Quarter: 2013Q3

REPORT INFORMATION
  Report Type: Report from Study
  Country: None (occurrence: US)
  Receive Date: 20130809
  Receipt Date: 20130809
  Transmission Date: 20140515
  Serious: Yes (Death, Hospitalization, Other)
  Sender: FDA-Public Use
  Company Number: US-ABBOTT-13P-163-1130127-00

PATIENT
  Age: 64 Year
  Sex: Male

DRUGS (12)
  1. MARINOL [Suspect]
     Indication: DECREASED APPETITE
     Route: 048
     Dates: start: 201301
  2. VICODIN [Suspect]
     Indication: PAIN
  3. XALKORI [Suspect]
     Indication: LUNG CANCER METASTATIC
     Route: 048
     Dates: start: 201110, end: 201301
  4. MEGACE [Suspect]
     Indication: PRODUCT USED FOR UNKNOWN INDICATION
     Route: 048
  5. ALPRAZOLAM [Concomitant]
     Indication: PRODUCT USED FOR UNKNOWN INDICATION
     Dosage: THREE TIMES DAILY AS REQUIRED
     Route: 048
  6. LOPERAMIDE [Concomitant]
     Indication: DIARRHOEA
     Dosage: TWO CAPSULES UP TO EIGHT IN 24 HOURS
  7. OMEPRAZOLE [Concomitant]
     Indication: PRODUCT USED FOR UNKNOWN INDICATION
     Route: 048
  8. SODIUM BICARBONATE [Concomitant]
     Indication: PRODUCT USED FOR UNKNOWN INDICATION
     Route: 048
  9. ZOLPIDEM [Concomitant]
     Indication: PRODUCT USED FOR UNKNOWN INDICATION
     Dosage: AT BEDTIME
     Route: 048
  10. PROTONIX [Concomitant]
  11. REGLAN [Concomitant]
  12. INFLUENZA VACCINE [Concomitant]

REACTIONS (10)
  - Death [Fatal]
  - Fall [Recovered/Resolved]
  - Confusional state [Recovered/Resolved]
  - Dysarthria [Recovered/Resolved]
  - Diarrhoea [Unknown]
  - Decreased appetite [Recovered/Resolved]
  - Asthenia [Recovered/Resolved]
  - Nausea [Recovered/Resolved]
  - Vomiting [Recovered/Resolved]
  - Malignant neoplasm progression [Unknown]
